FAERS Safety Report 12470024 (Version 2)
Quarter: 2016Q3

REPORT INFORMATION
  Report Type: Spontaneous
  Country: BR (occurrence: BR)
  Receive Date: 20160616
  Receipt Date: 20160823
  Transmission Date: 20161109
  Serious: Yes (Other)
  Sender: FDA-Public Use
  Company Number: BR-AMGEN-BRASP2016045349

PATIENT
  Sex: Male

DRUGS (4)
  1. CALCIUM VITAMIN D [Concomitant]
     Active Substance: CALCIUM\VITAMIN D
     Dosage: 1 TABLET OF 600 MG, DAILY
     Dates: end: 201503
  2. ALENDRONATE SODIUM. [Concomitant]
     Active Substance: ALENDRONATE SODIUM
     Dosage: 1 TABLET, ONCE WEEKLY
     Dates: end: 201503
  3. PARACETAMOL [Concomitant]
     Active Substance: ACETAMINOPHEN
     Dosage: UNK
  4. ENBREL [Suspect]
     Active Substance: ETANERCEPT
     Indication: EXPOSURE DURING PREGNANCY
     Dosage: 50 MG, ONCE WEEK
     Route: 064
     Dates: start: 201203, end: 201501

REACTIONS (2)
  - Maternal exposure during pregnancy [Unknown]
  - Dengue fever [Unknown]

NARRATIVE: CASE EVENT DATE: 2016
